FAERS Safety Report 12348474 (Version 1)
Quarter: 2016Q2

REPORT INFORMATION
  Report Type: Spontaneous
  Country: US (occurrence: US)
  Receive Date: 20160509
  Receipt Date: 20160509
  Transmission Date: 20160815
  Serious: No
  Sender: FDA-Public Use
  Company Number: ALCN2016US003127

PATIENT
  Age: 68 Year
  Sex: Female

DRUGS (3)
  1. ZADITOR [Suspect]
     Active Substance: KETOTIFEN FUMARATE
     Indication: EYE ALLERGY
     Dosage: 2 GTT, QD
     Route: 047
     Dates: start: 2015, end: 20160416
  2. ZADITOR [Suspect]
     Active Substance: KETOTIFEN FUMARATE
     Dosage: 2 GTT, QD
     Route: 047
     Dates: start: 2015, end: 20160416
  3. ZADITOR [Suspect]
     Active Substance: KETOTIFEN FUMARATE
     Dosage: 2 GTT, QD
     Route: 047
     Dates: start: 2015, end: 20160416

REACTIONS (2)
  - Lacrimation increased [Recovered/Resolved]
  - Drug ineffective [Recovered/Resolved]

NARRATIVE: CASE EVENT DATE: 20160412
